FAERS Safety Report 5383451-0 (Version None)
Quarter: 2007Q3

REPORT INFORMATION
  Report Type: 
  Country: None (occurrence: None)
  Receive Date: 20070710
  Receipt Date: 20070705
  Transmission Date: 20080115
  Serious: Yes (Life-Threatening, Hospitalization, Other)
  Sender: FDA-Public Use
  Company Number: GB-BOEHRINGER INGELHEIM PHARMACEUTICALS, INC.-2007-BP-16978YA

PATIENT
  Age: 63 Year
  Sex: Male

DRUGS (9)
  1. TAMSULOSIN HCL [Suspect]
     Indication: URINARY TRACT DISORDER
     Route: 048
     Dates: start: 20070303, end: 20070313
  2. ATORVASTATIN [Concomitant]
  3. CALCICHEW [Concomitant]
  4. FOLIC ACID [Concomitant]
  5. METHOTREXATE [Concomitant]
  6. OMEPRAZOLE [Concomitant]
  7. PREDNISOLONE [Concomitant]
  8. VALSARTAN [Concomitant]
  9. WARFARIN SODIUM [Concomitant]

REACTIONS (1)
  - BRADYCARDIA [None]
